FAERS Safety Report 15959995 (Version 1)
Quarter: 2019Q1

REPORT INFORMATION
  Report Type: Spontaneous
  Country: US (occurrence: US)
  Receive Date: 20190214
  Receipt Date: 20190214
  Transmission Date: 20190417
  Serious: No
  Sender: FDA-Public Use
  Company Number: US-ROCHE-2121448

PATIENT
  Age: 67 Year
  Sex: Male

DRUGS (1)
  1. ERIVEDGE [Suspect]
     Active Substance: VISMODEGIB
     Indication: PRODUCT USED FOR UNKNOWN INDICATION
     Dosage: FOR 3 MONTHS
     Route: 065

REACTIONS (5)
  - Myalgia [Unknown]
  - Muscular weakness [Unknown]
  - Fatigue [Unknown]
  - Dysgeusia [Unknown]
  - Alopecia [Unknown]
